FAERS Safety Report 6238452-7 (Version None)
Quarter: 2009Q2

REPORT INFORMATION
  Report Type: 
  Country: None (occurrence: None)
  Receive Date: 20090622
  Receipt Date: 20090617
  Transmission Date: 20091009
  Serious: Yes (Death, Life-Threatening, Hospitalization)
  Sender: FDA-Public Use
  Company Number: JP-BAYER-200910985BYL

PATIENT
  Age: 18 Year
  Sex: Male
  Weight: 47 kg

DRUGS (34)
  1. FLUDARA [Suspect]
     Indication: STEM CELL TRANSPLANT
     Dosage: TOTAL DAILY DOSE: 50 MG  UNIT DOSE: 50 MG
     Route: 042
     Dates: start: 20080822, end: 20080827
  2. BUSULFAN [Concomitant]
     Indication: ACUTE LYMPHOCYTIC LEUKAEMIA
     Route: 042
     Dates: start: 20080822, end: 20080823
  3. VALPROATE SODIUM [Concomitant]
     Indication: CONVULSION PROPHYLAXIS
     Route: 048
     Dates: start: 20080820, end: 20080825
  4. ITRIZOLE [Concomitant]
     Indication: INFECTION PROPHYLAXIS
     Route: 048
     Dates: start: 20080828, end: 20081022
  5. URSO 250 [Concomitant]
     Route: 048
     Dates: start: 20080815, end: 20081022
  6. OXINORM [Concomitant]
     Route: 048
     Dates: start: 20081013, end: 20081023
  7. CRAVIT [Concomitant]
     Indication: INFECTION PROPHYLAXIS
     Route: 048
     Dates: start: 20080815, end: 20081015
  8. ZYLORIC [Concomitant]
     Route: 048
     Dates: start: 20080930, end: 20081022
  9. LANSOPRAZOLE [Concomitant]
     Route: 048
     Dates: start: 20080905, end: 20081022
  10. DUROTEP [Concomitant]
     Dosage: 2.1-16.8MG/DAY
     Route: 062
     Dates: start: 20081012, end: 20081023
  11. MINOCYCLINE HCL [Concomitant]
     Indication: INFECTION PROPHYLAXIS
     Route: 048
     Dates: start: 20080925, end: 20081014
  12. LASIX [Concomitant]
     Route: 042
     Dates: start: 20080830, end: 20080927
  13. PROGRAF [Concomitant]
     Indication: PROPHYLAXIS AGAINST GRAFT VERSUS HOST DISEASE
     Route: 042
     Dates: start: 20080828, end: 20081020
  14. MEROPEN [Concomitant]
     Indication: INFECTION PROPHYLAXIS
     Route: 041
     Dates: start: 20081009, end: 20081022
  15. TOFRANIL [Concomitant]
     Route: 048
     Dates: start: 20081001, end: 20081008
  16. BARACLUDE [Concomitant]
     Indication: INFECTION PROPHYLAXIS
     Route: 048
     Dates: start: 20080829, end: 20081002
  17. PELTAZON [Concomitant]
     Route: 048
     Dates: start: 20080913, end: 20081012
  18. HEPARIN SODIUM [Concomitant]
     Route: 042
     Dates: start: 20080821, end: 20081006
  19. SOLU-MEDROL [Concomitant]
     Indication: PROPHYLAXIS AGAINST GRAFT VERSUS HOST DISEASE
     Route: 042
     Dates: start: 20080827, end: 20081006
  20. BROACT [Concomitant]
     Indication: INFECTION PROPHYLAXIS
     Route: 042
     Dates: start: 20081002, end: 20081008
  21. KEITEN [Concomitant]
     Indication: INFECTION PROPHYLAXIS
     Route: 042
     Dates: start: 20080918, end: 20081001
  22. VICCLOX [Concomitant]
     Indication: INFECTION PROPHYLAXIS
     Route: 041
     Dates: start: 20080825, end: 20080917
  23. TIENAM [Concomitant]
     Indication: INFECTION PROPHYLAXIS
     Route: 041
     Dates: start: 20080903, end: 20080917
  24. GRAN [Concomitant]
     Route: 042
     Dates: start: 20080830, end: 20080912
  25. IMMUNE GLOBULIN INTRAVENOUS (HUMAN) [Concomitant]
     Indication: INFECTION PROPHYLAXIS
     Route: 042
     Dates: start: 20080828, end: 20080830
  26. DIFLUCAN [Concomitant]
     Indication: INFECTION PROPHYLAXIS
     Route: 048
     Dates: start: 20080815, end: 20080824
  27. BAKTAR [Concomitant]
     Indication: INFECTION PROPHYLAXIS
     Route: 048
     Dates: start: 20080821, end: 20080824
  28. PRODIF [Concomitant]
     Indication: INFECTION PROPHYLAXIS
     Route: 042
     Dates: start: 20080825, end: 20080828
  29. LYMPHOGLOBULINE [Concomitant]
     Indication: PROPHYLAXIS AGAINST GRAFT VERSUS HOST DISEASE
     Route: 042
     Dates: start: 20080827, end: 20080828
  30. ZOVIRAX [Concomitant]
     Indication: INFECTION PROPHYLAXIS
     Route: 048
     Dates: start: 20080821, end: 20080824
  31. NASEA [Concomitant]
     Route: 042
     Dates: start: 20080822, end: 20080827
  32. CONCENTRATED RED CELLS [Concomitant]
     Indication: PACKED RED BLOOD CELL TRANSFUSION
     Route: 042
     Dates: start: 20081007, end: 20081022
  33. PLATELETS [Concomitant]
     Indication: PLATELET TRANSFUSION
     Route: 042
     Dates: start: 20080827, end: 20081020
  34. FRESH FROZEN PLASMA [Concomitant]
     Indication: BLOOD PRODUCT TRANSFUSION
     Route: 042
     Dates: start: 20080925, end: 20081016

REACTIONS (6)
  - ACUTE LYMPHOCYTIC LEUKAEMIA [None]
  - BLOOD LACTATE DEHYDROGENASE INCREASED [None]
  - CYTOMEGALOVIRUS INFECTION [None]
  - DISSEMINATED INTRAVASCULAR COAGULATION [None]
  - HEPATIC FUNCTION ABNORMAL [None]
  - RENAL IMPAIRMENT [None]
